FAERS Safety Report 8877106 (Version 1)
Quarter: 2012Q4

REPORT INFORMATION
  Report Type: 
  Country: CA (occurrence: CA)
  Receive Date: 20121030
  Receipt Date: 20121030
  Transmission Date: 20130627
  Serious: Yes (Other)
  Sender: FDA-Public Use
  Company Number: PHMT2006CA02063

PATIENT
  Age: 67 Year
  Sex: Female

DRUGS (5)
  1. SANDOSTATIN LAR [Suspect]
     Indication: CARCINOID TUMOUR
     Dosage: 20 mg, QMO
     Dates: start: 20050901
  2. SANDOSTATIN LAR [Suspect]
     Dosage: 30 mg, UNK
     Route: 030
     Dates: start: 20070115
  3. ALTACE [Concomitant]
  4. PANTOLOC ^SOLVAY^ [Concomitant]
  5. SYNTHROID [Concomitant]

REACTIONS (8)
  - Chest discomfort [Unknown]
  - Hypertension [Unknown]
  - Dyspnoea [Unknown]
  - Musculoskeletal discomfort [Unknown]
  - Pain in extremity [Unknown]
  - Neck pain [Unknown]
  - Musculoskeletal pain [Unknown]
  - Pruritus [Unknown]
